FAERS Safety Report 8400042-5 (Version None)
Quarter: 2012Q2

REPORT INFORMATION
  Report Type: 
  Country: None (occurrence: None)
  Receive Date: 20120531
  Receipt Date: 20120518
  Transmission Date: 20120825
  Serious: Yes (Death, Hospitalization, Other)
  Sender: FDA-Public Use
  Company Number: US-ROCHE-1051840

PATIENT
  Sex: Male
  Weight: 68 kg

DRUGS (10)
  1. ACETAMINOPHEN [Concomitant]
     Dosage: AS REQUIRED
     Route: 048
     Dates: start: 20010101
  2. ZANTAC [Concomitant]
     Indication: PROPHYLAXIS
     Route: 048
     Dates: start: 20120101
  3. DEXAMETHASONE [Suspect]
     Indication: METASTASES TO CENTRAL NERVOUS SYSTEM
     Route: 048
     Dates: start: 20120202
  4. VEMURAFENIB [Suspect]
     Indication: MALIGNANT MELANOMA
     Dosage: LAST DOSE PRIOR TO SAE ON 14/MAR/2012
     Route: 048
     Dates: start: 20120208, end: 20120314
  5. OMEPRAZOLE [Concomitant]
     Dates: start: 20120208
  6. KEPPRA [Concomitant]
     Indication: PROPHYLAXIS
     Route: 048
     Dates: start: 20120201
  7. OMEPRAZOLE [Concomitant]
     Indication: PROPHYLAXIS
     Route: 048
     Dates: start: 20120202, end: 20120208
  8. VEMURAFENIB [Suspect]
     Route: 048
     Dates: start: 20120404
  9. VICODIN [Concomitant]
     Dosage: TOTAL DAILY DOSE: 500/50MG AS REQUIRED
     Route: 048
     Dates: start: 20120101
  10. LISINOPRIL [Concomitant]
     Route: 048
     Dates: start: 20100101

REACTIONS (5)
  - BRAIN ABSCESS [None]
  - HAEMORRHAGE [None]
  - CONVULSION [None]
  - WOUND INFECTION [None]
  - HAEMORRHAGE INTRACRANIAL [None]
